FAERS Safety Report 10494937 (Version 1)
Quarter: 2014Q3

REPORT INFORMATION
  Report Type: Spontaneous
  Country: US (occurrence: None)
  Receive Date: 20140815
  Receipt Date: 20140815
  Transmission Date: 20150326
  Serious: Yes (Other)
  Sender: FDA-Public Use
  Company Number: ADR-2014-00217

PATIENT
  Age: 50 Year
  Sex: Male

DRUGS (4)
  1. COMPOUNDED BACLOFEN [Suspect]
     Active Substance: BACLOFEN
     Indication: PAIN
  2. MORPHINE (INTRATHECAL) [Suspect]
     Active Substance: MORPHINE
  3. CLONIDINE. [Suspect]
     Active Substance: CLONIDINE
  4. BUPIVACAINE [Suspect]
     Active Substance: BUPIVACAINE

REACTIONS (2)
  - No therapeutic response [None]
  - Pain [None]
